FAERS Safety Report 9665675 (Version 1)
Quarter: 2013Q4

REPORT INFORMATION
  Report Type: Spontaneous
  Country: AU (occurrence: AU)
  Receive Date: 20131104
  Receipt Date: 20131104
  Transmission Date: 20140711
  Serious: Yes (Other)
  Sender: FDA-Public Use
  Company Number: PHHY2013AU123964

PATIENT
  Sex: Male

DRUGS (2)
  1. TEGRETOL [Suspect]
     Dosage: UNK UKN, UNK
  2. DOXYCYCLIN//DOXYCYCLINE [Interacting]

REACTIONS (3)
  - Sinusitis [Unknown]
  - Tooth abscess [Unknown]
  - Drug interaction [Unknown]
